FAERS Safety Report 8164803-2 (Version None)
Quarter: 2012Q1

REPORT INFORMATION
  Report Type: 
  Country: None (occurrence: None)
  Receive Date: 20120227
  Receipt Date: 20120215
  Transmission Date: 20120608
  Serious: No
  Sender: FDA-Public Use
  Company Number: US-BIOGENIDEC-2012BI006052

PATIENT
  Sex: Male

DRUGS (2)
  1. TYSABRI [Suspect]
     Indication: MULTIPLE SCLEROSIS
     Route: 042
     Dates: start: 20080618, end: 20091215
  2. TYSABRI [Suspect]
     Route: 042
     Dates: start: 20100729, end: 20101117

REACTIONS (3)
  - MOBILITY DECREASED [None]
  - NECK PAIN [None]
  - MUSCULAR WEAKNESS [None]
